FAERS Safety Report 6143489-2 (Version None)
Quarter: 2009Q2

REPORT INFORMATION
  Report Type: 
  Country: None (occurrence: None)
  Receive Date: 20090403
  Receipt Date: 20090331
  Transmission Date: 20091009
  Serious: Yes (Death)
  Sender: FDA-Public Use
  Company Number: PHHY2009JP07662

PATIENT
  Sex: Female

DRUGS (8)
  1. DIOVAN [Suspect]
     Dosage: 40 MG, QD
     Route: 048
     Dates: start: 20080130, end: 20090124
  2. ACECOL [Concomitant]
     Indication: HYPERTENSION
     Dosage: 2 MG
     Route: 048
     Dates: start: 20071018, end: 20080229
  3. ARTIST [Concomitant]
     Indication: HYPERTENSION
     Dosage: 20 MG
     Route: 048
     Dates: start: 20051110
  4. ARTIST [Concomitant]
     Dosage: 10 MG
     Route: 048
     Dates: end: 20090124
  5. LIVALO KOWA [Concomitant]
     Dosage: 1 MG
     Route: 048
     Dates: start: 20070315, end: 20090124
  6. EUGLUCON [Concomitant]
     Dosage: 2.5 MG
     Route: 048
     Dates: start: 20070301, end: 20090124
  7. BASEN [Concomitant]
     Dosage: 0.6 MG
     Route: 048
     Dates: start: 20071121, end: 20080711
  8. FRANDOL [Concomitant]
     Dosage: 40 MG
     Route: 062
     Dates: start: 20070301, end: 20090124

REACTIONS (3)
  - CARDIAC FAILURE [None]
  - DIABETES MELLITUS [None]
  - URINARY TRACT INFECTION [None]
